FAERS Safety Report 21572049 (Version 1)
Quarter: 2022Q4

REPORT INFORMATION
  Report Type: Report from Study
  Country: US (occurrence: US)
  Receive Date: 20221109
  Receipt Date: 20221109
  Transmission Date: 20230113
  Serious: Yes (Other)
  Sender: FDA-Public Use
  Company Number: US-NOVEN PHARMACEUTICALS, INC.-2022-NOV-US001062

PATIENT
  Sex: Male
  Weight: 22.676 kg

DRUGS (3)
  1. DAYTRANA [Suspect]
     Active Substance: METHYLPHENIDATE
     Indication: Attention deficit hyperactivity disorder
     Dosage: 15 MILLIGRAM/ 9 HOURS, UNK
     Route: 062
     Dates: start: 202112
  2. CLONIDINE [Concomitant]
     Active Substance: CLONIDINE
     Indication: Product used for unknown indication
     Dosage: UNKNOWN
     Route: 065
  3. BUSPAR [Concomitant]
     Active Substance: BUSPIRONE HYDROCHLORIDE
     Indication: Product used for unknown indication
     Dosage: UNKNOWN
     Route: 065

REACTIONS (7)
  - Device issue [Recovered/Resolved]
  - Product adhesion issue [Recovered/Resolved]
  - Device defective [Recovered/Resolved]
  - Psychomotor hyperactivity [Recovered/Resolved]
  - Product administered at inappropriate site [Not Recovered/Not Resolved]
  - Product administration error [Recovered/Resolved]
  - Adhesive tape use [Recovered/Resolved]

NARRATIVE: CASE EVENT DATE: 20220101
